FAERS Safety Report 8654616 (Version 4)
Quarter: 2013Q1

REPORT INFORMATION
  Report Type: Spontaneous
  Country: US (occurrence: US)
  Receive Date: 20120709
  Receipt Date: 20130225
  Transmission Date: 20140127
  Serious: Yes (Hospitalization, Disabling, Other)
  Sender: FDA-Public Use
  Company Number: US-ASTRAZENECA-2012SE44387

PATIENT
  Age: 62 Year
  Sex: Male

DRUGS (2)
  1. NEXIUM [Suspect]
     Indication: DYSPEPSIA
     Route: 048
  2. PRILOSEC [Suspect]
     Route: 048

REACTIONS (13)
  - Haematemesis [Recovered/Resolved]
  - Gastrooesophageal reflux disease [Unknown]
  - Haemorrhage [Unknown]
  - Multiple fractures [Unknown]
  - Vomiting [Unknown]
  - Hiatus hernia [Unknown]
  - Dyspepsia [Unknown]
  - Hypoacusis [Unknown]
  - Gastric disorder [Unknown]
  - Therapeutic response unexpected [Unknown]
  - Malaise [Unknown]
  - Drug ineffective [Unknown]
  - Drug dose omission [Unknown]
